FAERS Safety Report 9674437 (Version 2)
Quarter: 2013Q4

REPORT INFORMATION
  Report Type: Spontaneous
  Country: FR (occurrence: FR)
  Receive Date: 20131107
  Receipt Date: 20131204
  Transmission Date: 20140711
  Serious: Yes (Hospitalization)
  Sender: FDA-Public Use
  Company Number: PHHY2013FR124010

PATIENT
  Age: 64 Year
  Sex: Male

DRUGS (2)
  1. CANDESARTAN SANDOZ [Suspect]
     Indication: HYPERTENSION
     Dosage: 1 DF, QD
     Route: 048
     Dates: start: 20130915, end: 20131015
  2. ASCABIOL [Concomitant]
     Indication: PRODUCT USED FOR UNKNOWN INDICATION
     Route: 065

REACTIONS (3)
  - Dermatitis exfoliative [Recovered/Resolved]
  - Eczema [Recovered/Resolved]
  - Pruritus [Recovered/Resolved with Sequelae]
